FAERS Safety Report 7998643-1 (Version None)
Quarter: 2011Q4

REPORT INFORMATION
  Report Type: 
  Country: None (occurrence: None)
  Receive Date: 20111221
  Receipt Date: 20111213
  Transmission Date: 20120403
  Serious: Yes (Other)
  Sender: FDA-Public Use
  Company Number: US-ROCHE-793866

PATIENT
  Sex: Male
  Weight: 65.83 kg

DRUGS (2)
  1. ACCUTANE [Suspect]
     Indication: ACNE
     Route: 065
     Dates: start: 20001220, end: 20010529
  2. ACCUTANE [Suspect]
     Route: 065
     Dates: start: 19990801, end: 20000901

REACTIONS (10)
  - CROHN'S DISEASE [None]
  - NASAL DRYNESS [None]
  - INTESTINAL OBSTRUCTION [None]
  - DRY EYE [None]
  - INFLAMMATORY BOWEL DISEASE [None]
  - EMOTIONAL DISTRESS [None]
  - DEPRESSION [None]
  - BLOOD CHOLESTEROL INCREASED [None]
  - CHAPPED LIPS [None]
  - LIVER DISORDER [None]
